FAERS Safety Report 13932647 (Version 1)
Quarter: 2017Q3

REPORT INFORMATION
  Report Type: Spontaneous
  Country: US (occurrence: US)
  Receive Date: 20170904
  Receipt Date: 20170904
  Transmission Date: 20171127
  Serious: No
  Sender: FDA-Public Use
  Company Number: US-BRISTOL-MYERS SQUIBB COMPANY-BMS-2017-079019

PATIENT
  Sex: Male
  Weight: 74.83 kg

DRUGS (1)
  1. SPRYCEL [Suspect]
     Active Substance: DASATINIB
     Indication: TESTIS CANCER
     Dosage: 30 MG, UNK
     Route: 048

REACTIONS (2)
  - Dyspepsia [Unknown]
  - Product use in unapproved indication [Unknown]
